FAERS Safety Report 7981962-2 (Version None)
Quarter: 2011Q4

REPORT INFORMATION
  Report Type: 
  Country: None (occurrence: None)
  Receive Date: 20111215
  Receipt Date: 20111207
  Transmission Date: 20120403
  Serious: Yes (Hospitalization)
  Sender: FDA-Public Use
  Company Number: JP-JNJFOC-20111100719

PATIENT
  Sex: Male

DRUGS (2)
  1. MINOXIDIL [Suspect]
     Indication: ANDROGENETIC ALOPECIA
     Route: 061
     Dates: start: 20100829, end: 20110801
  2. MINOXIDIL [Suspect]
     Route: 061

REACTIONS (2)
  - VIITH NERVE PARALYSIS [None]
  - HERPES ZOSTER [None]
